FAERS Safety Report 16688364 (Version 1)
Quarter: 2019Q3

REPORT INFORMATION
  Report Type: Spontaneous
  Country: US (occurrence: US)
  Receive Date: 20190809
  Receipt Date: 20190809
  Transmission Date: 20191004
  Serious: Yes (Other)
  Sender: FDA-Public Use
  Company Number: US-RADIUS HEALTH INC.-2019US002724

PATIENT
  Age: 65 Year
  Sex: Female

DRUGS (2)
  1. TYMLOS [Suspect]
     Active Substance: ABALOPARATIDE
     Indication: PSORIATIC ARTHROPATHY
  2. TYMLOS [Suspect]
     Active Substance: ABALOPARATIDE
     Indication: OSTEOPOROSIS POSTMENOPAUSAL
     Dosage: 80 MCG, DAILY
     Route: 058
     Dates: start: 20181006

REACTIONS (8)
  - Vasodilatation [Unknown]
  - Halo vision [Unknown]
  - Pyrexia [Unknown]
  - Headache [Unknown]
  - Sensory disturbance [Unknown]
  - Off label use [Unknown]
  - Pain in extremity [Unknown]
  - Feeling hot [Unknown]

NARRATIVE: CASE EVENT DATE: 20181006
